FAERS Safety Report 6120655-3 (Version None)
Quarter: 2009Q1

REPORT INFORMATION
  Report Type: 
  Country: None (occurrence: None)
  Receive Date: 20090312
  Receipt Date: 20090312
  Transmission Date: 20090719
  Serious: Yes (Other)
  Sender: FDA-Public Use
  Company Number: None

PATIENT
  Age: 9 Year
  Sex: Male
  Weight: 31.7518 kg

DRUGS (1)
  1. SINGULAIR [Suspect]
     Indication: MULTIPLE ALLERGIES
     Dosage: 1 TABLET 5 MG 1 TIME PERDAY
     Dates: start: 20070820, end: 20090304

REACTIONS (7)
  - ANXIETY [None]
  - BRUXISM [None]
  - DEPRESSED MOOD [None]
  - DYSKINESIA [None]
  - EXCESSIVE EYE BLINKING [None]
  - FEELING ABNORMAL [None]
  - TIC [None]
